FAERS Safety Report 7248499-X (Version None)
Quarter: 2011Q1

REPORT INFORMATION
  Report Type: 
  Country: None (occurrence: None)
  Receive Date: 20110127
  Receipt Date: 20110119
  Transmission Date: 20110831
  Serious: Yes (Hospitalization)
  Sender: FDA-Public Use
  Company Number: US-RB-020069-10

PATIENT
  Age: 81 Year
  Sex: Female

DRUGS (1)
  1. SUBOXONE [Suspect]
     Indication: PRODUCT USED FOR UNKNOWN INDICATION
     Dosage: STATES TAPERING VERY QUICKLY WITH DOCTOR, UNKNOWN EXACT DETAILS
     Route: 065
     Dates: start: 20101210

REACTIONS (9)
  - POOR QUALITY SLEEP [None]
  - FATIGUE [None]
  - DEPRESSION [None]
  - DISTURBANCE IN ATTENTION [None]
  - FEELING ABNORMAL [None]
  - DYSPNOEA [None]
  - ANXIETY [None]
  - LETHARGY [None]
  - VISION BLURRED [None]
